FAERS Safety Report 7988697-0 (Version None)
Quarter: 2011Q4

REPORT INFORMATION
  Report Type: 
  Country: None (occurrence: None)
  Receive Date: 20111218
  Receipt Date: 20111207
  Transmission Date: 20120403
  Serious: Yes (Other)
  Sender: FDA-Public Use
  Company Number: US-ELI_LILLY_AND_COMPANY-US201112003386

PATIENT
  Age: 78 Year
  Sex: Female

DRUGS (3)
  1. SIMVASTATIN [Concomitant]
     Indication: BLOOD CHOLESTEROL INCREASED
     Dosage: UNK
     Dates: start: 20060101
  2. CYMBALTA [Suspect]
     Dosage: 60 MG, UNK
     Dates: start: 20110301, end: 20111101
  3. ZETIA [Concomitant]
     Indication: BLOOD CHOLESTEROL INCREASED
     Dosage: UNK
     Dates: start: 20060101

REACTIONS (10)
  - LIVER DISORDER [None]
  - BLOOD ALKALINE PHOSPHATASE ABNORMAL [None]
  - LIPASE ABNORMAL [None]
  - NAUSEA [None]
  - ASPARTATE AMINOTRANSFERASE ABNORMAL [None]
  - DRUG LEVEL CHANGED [None]
  - ABDOMINAL PAIN [None]
  - JAUNDICE [None]
  - COAGULATION TEST ABNORMAL [None]
  - ALANINE AMINOTRANSFERASE ABNORMAL [None]
